FAERS Safety Report 24112892 (Version 1)
Quarter: 2024Q3

REPORT INFORMATION
  Report Type: Spontaneous
  Country: US (occurrence: US)
  Receive Date: 20240719
  Receipt Date: 20240719
  Transmission Date: 20241016
  Serious: No
  Sender: UPSHER-SMITH
  Company Number: US-UPSHER-SMITH LABORATORIES, LLC-2023USL00702

PATIENT
  Sex: Male
  Weight: 76.19 kg

DRUGS (3)
  1. TESTOSTERONE [Suspect]
     Active Substance: TESTOSTERONE
     Indication: Blood testosterone decreased
     Dosage: 50 MG (1 PACKET), 1X/DAY TO SHOULDER
     Route: 061
     Dates: end: 2023
  2. FINASTERIDE [Concomitant]
     Active Substance: FINASTERIDE
  3. TADALAFIL [Concomitant]
     Active Substance: TADALAFIL

REACTIONS (1)
  - Drug ineffective [Recovered/Resolved]
